FAERS Safety Report 10617127 (Version 1)
Quarter: 2014Q4

REPORT INFORMATION
  Report Type: Other
  Country: GB (occurrence: GB)
  Receive Date: 20141201
  Receipt Date: 20141201
  Transmission Date: 20150529
  Serious: Yes (Other)
  Sender: FDA-Public Use
  Company Number: GB-MYLANLABS-2014M1011482

PATIENT

DRUGS (1)
  1. VANCOMYCIN [Suspect]
     Active Substance: VANCOMYCIN
     Dosage: 15 MG, UNK
     Dates: start: 20140710, end: 20140710

REACTIONS (3)
  - Vomiting [Unknown]
  - Cold sweat [Unknown]
  - Angioedema [Unknown]

NARRATIVE: CASE EVENT DATE: 20140710
